FAERS Safety Report 26190148 (Version 1)
Quarter: 2025Q4

REPORT INFORMATION
  Report Type: Report from Study
  Country: US (occurrence: US)
  Receive Date: 20251223
  Receipt Date: 20251223
  Transmission Date: 20260118
  Serious: Yes (Hospitalization)
  Sender: ABBVIE
  Company Number: US-ABBVIE-6598537

PATIENT
  Sex: Female

DRUGS (1)
  1. HUMIRA [Suspect]
     Active Substance: ADALIMUMAB
     Indication: Product used for unknown indication
     Route: 058
     Dates: start: 20161116

REACTIONS (5)
  - Coma [Recovered/Resolved]
  - Psoriasis [Not Recovered/Not Resolved]
  - Pneumothorax [Recovered/Resolved]
  - Alopecia [Not Recovered/Not Resolved]
  - Pneumonia [Recovered/Resolved]
